FAERS Safety Report 19307116 (Version 1)
Quarter: 2021Q2

REPORT INFORMATION
  Report Type: Spontaneous
  Country: US (occurrence: US)
  Receive Date: 20210525
  Receipt Date: 20210525
  Transmission Date: 20210717
  Serious: No
  Sender: FDA-Public Use
  Company Number: None

PATIENT
  Age: 26 Year
  Sex: Female

DRUGS (1)
  1. MAKENA [Suspect]
     Active Substance: HYDROXYPROGESTERONE CAPROATE
     Indication: PREGNANCY
     Dosage: ?          OTHER DOSE:275MG/1.1ML;?
     Route: 058
     Dates: start: 20210203, end: 20210406

REACTIONS (4)
  - Hypersensitivity [None]
  - Exposure during pregnancy [None]
  - Eye swelling [None]
  - Urticaria [None]

NARRATIVE: CASE EVENT DATE: 20210406
